FAERS Safety Report 21697453 (Version 1)
Quarter: 2022Q4

REPORT INFORMATION
  Report Type: Spontaneous
  Country: NL (occurrence: NL)
  Receive Date: 20221208
  Receipt Date: 20221208
  Transmission Date: 20230113
  Serious: Yes (Life-Threatening)
  Sender: FDA-Public Use
  Company Number: None

PATIENT
  Sex: Male
  Weight: 86 kg

DRUGS (2)
  1. MONTELUKAST [Suspect]
     Active Substance: MONTELUKAST SODIUM
     Indication: Allergic respiratory symptom
     Dosage: 10 MILLIGRAM DAILY; 10 MG, DURATION 2 DAYS, 1X1 TABLET COATED 10MG / BRAND NAME NOT SPECIFIED
     Dates: start: 20221110, end: 20221112
  2. MONTELUKAST [Suspect]
     Active Substance: MONTELUKAST SODIUM
     Indication: Asthma

REACTIONS (3)
  - Sinus congestion [Recovering/Resolving]
  - Sinus pain [Recovering/Resolving]
  - Dry mouth [Recovering/Resolving]
